FAERS Safety Report 9844867 (Version 2)
Quarter: 2014Q2

REPORT INFORMATION
  Report Type: Spontaneous
  Country: ES (occurrence: None)
  Receive Date: 20140122
  Receipt Date: 20140422
  Transmission Date: 20141212
  Serious: Yes (Hospitalization)
  Sender: FDA-Public Use
  Company Number: KAD201401-000073

PATIENT
  Age: 59 Year
  Sex: Female

DRUGS (11)
  1. RIBAVIRIN [Suspect]
     Indication: CHRONIC HEPATITIS C
     Route: 048
     Dates: start: 20131009, end: 20140103
  2. BMS 914143(PEGINTERFERON LAMBDA) [Suspect]
     Indication: CHRONIC HEPATITIS C
     Route: 058
     Dates: start: 20131009, end: 20140101
  3. PEGINTERFERON ALFA-2A (PEGINTERFERON ALFA-2A) [Suspect]
     Indication: CHRONIC HEPATITIS C
     Route: 058
     Dates: start: 20131009, end: 20140101
  4. TELAPREVIR [Suspect]
     Indication: CHRONIC HEPATITIS C
     Dates: start: 20131009, end: 20140101
  5. OMEPRAZOLE(OMEPRAZOLE) [Concomitant]
  6. HYDROZYZINE(HYDROXYZINE) [Concomitant]
  7. CITALOPRAM(CITALOPRAM) [Concomitant]
  8. IBANDRONATE(IBANDRONIC ACID) [Concomitant]
  9. METOCLOPRAMIDE(METOCLOPRAMIDE HCL) [Concomitant]
  10. LORAZEPAM(LORAZEPAM) [Concomitant]
  11. LORATADINE(LORATIDINE) [Concomitant]

REACTIONS (10)
  - Asthenia [None]
  - Blood uric acid increased [None]
  - Blood potassium decreased [None]
  - Haemoglobin decreased [None]
  - Blood triglycerides increased [None]
  - High density lipoprotein decreased [None]
  - Amylase increased [None]
  - Lipase increased [None]
  - Creatinine renal clearance decreased [None]
  - Hepatitis toxic [None]
